FAERS Safety Report 17025060 (Version 1)
Quarter: 2019Q4

REPORT INFORMATION
  Report Type: Spontaneous
  Country: US (occurrence: US)
  Receive Date: 20191008
  Receipt Date: 20191008
  Transmission Date: 20200122
  Serious: Yes (Hospitalization)
  Sender: FDA-Public Use
  Company Number: None

PATIENT
  Age: 65 Year
  Sex: Male
  Weight: 74.8 kg

DRUGS (2)
  1. CARBOPLATIN. [Suspect]
     Active Substance: CARBOPLATIN
     Dates: end: 20190905
  2. TAXOTERE [Suspect]
     Active Substance: DOCETAXEL
     Dates: end: 20190905

REACTIONS (5)
  - Metastases to liver [None]
  - Prostate cancer metastatic [None]
  - Hypocalcaemia [None]
  - Platelet count decreased [None]
  - Hemiplegia [None]

NARRATIVE: CASE EVENT DATE: 20190909
